FAERS Safety Report 4713403-2 (Version None)
Quarter: 2005Q3

REPORT INFORMATION
  Report Type: 
  Country: None (occurrence: None)
  Receive Date: 20050713
  Receipt Date: 20050704
  Transmission Date: 20060218
  Serious: Yes (Hospitalization)
  Sender: FDA-Public Use
  Company Number: FR-JNJFOC-20050700907

PATIENT
  Age: 30 Month
  Sex: Male
  Weight: 10.8 kg

DRUGS (10)
  1. IMODIUM [Suspect]
     Route: 049
  2. IMODIUM [Suspect]
     Indication: DIARRHOEA
     Route: 049
  3. AUGMENTIN '125' [Interacting]
     Route: 049
  4. AUGMENTIN '125' [Interacting]
     Indication: DRUG USE FOR UNKNOWN INDICATION
     Route: 049
  5. SMECTA [Concomitant]
     Route: 065
  6. SMECTA [Concomitant]
     Route: 065
  7. SMECTA [Concomitant]
     Route: 065
  8. SMECTA [Concomitant]
     Route: 065
  9. ULTRA-LEVURE [Concomitant]
     Route: 065
  10. DOLIPRANE [Concomitant]
     Route: 065

REACTIONS (10)
  - ABDOMINAL DISTENSION [None]
  - ASTHENIA [None]
  - CONSTIPATION [None]
  - DIARRHOEA [None]
  - DIET REFUSAL [None]
  - DRUG INTERACTION [None]
  - LYMPHADENOPATHY [None]
  - PYREXIA [None]
  - TONSILLITIS [None]
  - VOMITING [None]
